FAERS Safety Report 20691306 (Version 1)
Quarter: 2022Q2

REPORT INFORMATION
  Report Type: Report from Study
  Country: JP (occurrence: None)
  Receive Date: 20220408
  Receipt Date: 20220408
  Transmission Date: 20220721
  Serious: Yes (Death, Life-Threatening, Hospitalization, Other)
  Sender: FDA-Public Use
  Company Number: JP-MDD US Operations-MDD202204-000687

PATIENT
  Age: 60 Year
  Sex: Male
  Weight: 50 kg

DRUGS (21)
  1. APOKYN [Suspect]
     Active Substance: APOMORPHINE HYDROCHLORIDE
     Indication: Parkinson^s disease
     Route: 058
     Dates: start: 20150130, end: 20150130
  2. APOKYN [Suspect]
     Active Substance: APOMORPHINE HYDROCHLORIDE
     Route: 058
     Dates: start: 20150131, end: 20150204
  3. APOKYN [Suspect]
     Active Substance: APOMORPHINE HYDROCHLORIDE
     Route: 058
     Dates: start: 20150205, end: 20150205
  4. APOKYN [Suspect]
     Active Substance: APOMORPHINE HYDROCHLORIDE
     Route: 058
     Dates: start: 20150206, end: 20150209
  5. APOKYN [Suspect]
     Active Substance: APOMORPHINE HYDROCHLORIDE
     Route: 058
     Dates: start: 20150210, end: 20150210
  6. APOKYN [Suspect]
     Active Substance: APOMORPHINE HYDROCHLORIDE
     Route: 058
     Dates: start: 20150211, end: 20150211
  7. APOKYN [Suspect]
     Active Substance: APOMORPHINE HYDROCHLORIDE
     Route: 058
     Dates: start: 20150212, end: 20150212
  8. ISTRADEFYLLINE [Suspect]
     Active Substance: ISTRADEFYLLINE
     Indication: Parkinson^s disease
     Route: 048
     Dates: end: 20150212
  9. LANSOPRAZOLE [Concomitant]
     Active Substance: LANSOPRAZOLE
     Indication: Gastrooesophageal reflux disease
     Dosage: 15 MG
     Route: 048
     Dates: end: 20150212
  10. TAMIFLU [Concomitant]
     Active Substance: OSELTAMIVIR PHOSPHATE
     Dosage: NOT PROVIDED
  11. MIDODRINE HYDROCHLORIDE [Concomitant]
     Active Substance: MIDODRINE HYDROCHLORIDE
     Indication: Orthostatic hypotension
     Dosage: 4MG
     Route: 048
     Dates: end: 20150212
  12. MAGNESIUM OXIDE [Concomitant]
     Active Substance: MAGNESIUM OXIDE
     Indication: Constipation
     Dosage: 1.8G
     Route: 048
     Dates: end: 20150212
  13. MOSAPRIDE CITRATE [Concomitant]
     Active Substance: MOSAPRIDE CITRATE
     Indication: Prophylaxis of nausea and vomiting
     Dosage: 15MG
     Route: 048
     Dates: end: 20150212
  14. SELEGILINE HYDROCHLORIDE [Concomitant]
     Active Substance: SELEGILINE HYDROCHLORIDE
     Dosage: NOT PROVIDED
     Dates: end: 20150212
  15. AMANTADINE HYDROCHLORIDE [Concomitant]
     Active Substance: AMANTADINE HYDROCHLORIDE
     Indication: Parkinson^s disease
     Dosage: 200 MG
     Route: 048
     Dates: end: 20150212
  16. ZONISAMIDE [Concomitant]
     Active Substance: ZONISAMIDE
     Indication: Parkinson^s disease
     Dosage: 50 MG
     Route: 048
     Dates: end: 20150212
  17. RIVOTRIL [Concomitant]
     Active Substance: CLONAZEPAM
     Indication: Hallucination, visual
     Dosage: 1 MG
     Route: 048
     Dates: end: 20150212
  18. SEROQUEL [Concomitant]
     Active Substance: QUETIAPINE FUMARATE
     Dosage: 12.5MG
     Route: 048
     Dates: end: 20150212
  19. BENSERAZIDE HYDROCHLORIDE\LEVODOPA [Concomitant]
     Active Substance: BENSERAZIDE HYDROCHLORIDE\LEVODOPA
     Indication: Parkinson^s disease
     Route: 048
     Dates: end: 20150212
  20. PENICILLIN [Concomitant]
     Active Substance: PENICILLIN
     Dosage: NOT PROVIDED
  21. ZITHROMAX [Concomitant]
     Active Substance: AZITHROMYCIN DIHYDRATE
     Dosage: NOT PROVIDED

REACTIONS (3)
  - Syncope [Fatal]
  - Hyperammonaemia [Unknown]
  - Hepatic function abnormal [Unknown]

NARRATIVE: CASE EVENT DATE: 20150210
